FAERS Safety Report 12092607 (Version 1)
Quarter: 2016Q1

REPORT INFORMATION
  Report Type: Spontaneous
  Country: US (occurrence: None)
  Receive Date: 20160218
  Receipt Date: 20160218
  Transmission Date: 20160526
  Serious: No
  Sender: FDA-Public Use
  Company Number: None

PATIENT
  Age: 60 Year
  Sex: Female

DRUGS (4)
  1. SYNTHROID [Concomitant]
     Active Substance: LEVOTHYROXINE SODIUM
  2. FOLIC ACID. [Concomitant]
     Active Substance: FOLIC ACID
  3. VIT. D [Concomitant]
  4. ORENCIA [Suspect]
     Active Substance: ABATACEPT
     Indication: RHEUMATOID ARTHRITIS
     Dosage: 125MG (1ML) WEEKLY INJECTION (SQ)
     Route: 058
     Dates: start: 20150131

REACTIONS (4)
  - Joint lock [None]
  - Rash papular [None]
  - Urticaria [None]
  - Pain in extremity [None]

NARRATIVE: CASE EVENT DATE: 20151201
